FAERS Safety Report 23531737 (Version 1)
Quarter: 2024Q1

REPORT INFORMATION
  Report Type: Spontaneous
  Country: US (occurrence: None)
  Receive Date: 20240215
  Receipt Date: 20240215
  Transmission Date: 20240410
  Serious: Yes (Other)
  Sender: FDA-Public Use
  Company Number: None

PATIENT
  Age: 38 Year
  Sex: Female
  Weight: 68.4 kg

DRUGS (6)
  1. UBRELVY [Suspect]
     Active Substance: UBROGEPANT
     Indication: Migraine
     Dosage: OTHER QUANTITY : 30 TABLET(S);?FREQUENCY : AS NEEDED;?
     Route: 048
     Dates: start: 20221122, end: 20240215
  2. TEGRETOL [Suspect]
     Active Substance: CARBAMAZEPINE
  3. prozoson [Concomitant]
  4. HYDROXYZINE HYDROCHLORIDE [Concomitant]
     Active Substance: HYDROXYZINE HYDROCHLORIDE
  5. TOPIRAMATE [Concomitant]
     Active Substance: TOPIRAMATE
  6. Vitem D Pill [Concomitant]

REACTIONS (3)
  - Drug ineffective [None]
  - Anger [None]
  - Emotional distress [None]

NARRATIVE: CASE EVENT DATE: 20240215
